FAERS Safety Report 6949083-5 (Version None)
Quarter: 2010Q3

REPORT INFORMATION
  Report Type: 
  Country: None (occurrence: None)
  Receive Date: 20100828
  Receipt Date: 20100120
  Transmission Date: 20110219
  Serious: No
  Sender: FDA-Public Use
  Company Number: US-ABBOTT-09P-163-0613165-00

PATIENT
  Sex: Female
  Weight: 67.192 kg

DRUGS (9)
  1. NIASPAN [Suspect]
     Indication: HIGH DENSITY LIPOPROTEIN DECREASED
     Route: 058
     Dates: start: 20091026
  2. NEURONTIN [Suspect]
     Indication: NERVE INJURY
  3. ASPIRIN [Concomitant]
     Indication: ANTICOAGULANT THERAPY
  4. CARVEDILOR [Concomitant]
     Indication: AORTIC STENOSIS
  5. CARVEDILOR [Concomitant]
     Indication: CARDIAC VALVE DISEASE
  6. SPIRONOLACTONE [Concomitant]
     Indication: SWELLING
  7. CRESTOR [Concomitant]
     Indication: BLOOD CHOLESTEROL INCREASED
  8. EXFORGE [Concomitant]
     Indication: HYPERTENSION
  9. PLAVIX [Concomitant]
     Indication: TRANSIENT ISCHAEMIC ATTACK

REACTIONS (2)
  - SKIN BURNING SENSATION [None]
  - SWELLING [None]
